FAERS Safety Report 23768055 (Version 2)
Quarter: 2024Q2

REPORT INFORMATION
  Report Type: Spontaneous
  Country: US (occurrence: US)
  Receive Date: 20240422
  Receipt Date: 20240523
  Transmission Date: 20240716
  Serious: Yes (Hospitalization, Other)
  Sender: FDA-Public Use
  Company Number: US-BRISTOL-MYERS SQUIBB COMPANY-2024-061595

PATIENT
  Age: 70 Year
  Sex: Male
  Weight: 93.89 kg

DRUGS (1)
  1. POMALYST [Suspect]
     Active Substance: POMALIDOMIDE
     Indication: Plasma cell myeloma
     Dosage: D1-21 Q 28 DAYS
     Route: 048
     Dates: start: 20240327

REACTIONS (2)
  - Cardiac disorder [Recovered/Resolved]
  - Ventricular extrasystoles [Recovering/Resolving]
